FAERS Safety Report 12933334 (Version 1)
Quarter: 2016Q4

REPORT INFORMATION
  Report Type: Spontaneous
  Country: US (occurrence: US)
  Receive Date: 20161111
  Receipt Date: 20161111
  Transmission Date: 20170207
  Serious: No
  Sender: FDA-Public Use
  Company Number: US-ACTAVIS-2016-11754

PATIENT
  Sex: Male

DRUGS (1)
  1. ALBUTEROL SULFATE (AMALLC) [Suspect]
     Active Substance: ALBUTEROL SULFATE
     Indication: PRODUCT USED FOR UNKNOWN INDICATION
     Dosage: UNK
     Route: 055
     Dates: start: 201605

REACTIONS (2)
  - Dyspnoea [Unknown]
  - Skin discolouration [Unknown]

NARRATIVE: CASE EVENT DATE: 20160527
